FAERS Safety Report 8342589 (Version 4)
Quarter: 2019Q3

REPORT INFORMATION
  Report Type: Spontaneous
  Country: US (occurrence: US)
  Receive Date: 20120118
  Receipt Date: 20190730
  Transmission Date: 20191005
  Serious: Yes (Disabling, Other)
  Sender: FDA-Public Use
  Company Number: US-ASTRAZENECA-2012SE01691

PATIENT
  Age: 52 Year
  Sex: Male

DRUGS (63)
  1. NEXIUM [Suspect]
     Active Substance: ESOMEPRAZOLE MAGNESIUM
     Indication: GASTROOESOPHAGEAL REFLUX DISEASE
     Dosage: 40.0MG UNKNOWN
     Route: 065
     Dates: start: 2001
  2. NEXIUM [Suspect]
     Active Substance: ESOMEPRAZOLE MAGNESIUM
     Indication: ANXIETY
     Dosage: 40.0MG UNKNOWN
     Route: 065
     Dates: start: 2001
  3. NEXIUM [Suspect]
     Active Substance: ESOMEPRAZOLE MAGNESIUM
     Indication: DEPRESSION
     Dosage: 100.0MG UNKNOWN
     Route: 048
     Dates: start: 200209
  4. NEXIUM [Suspect]
     Active Substance: ESOMEPRAZOLE MAGNESIUM
     Indication: DYSPEPSIA
     Dosage: GENERIC ESOMEPRAZOLE UNKNOWN
     Route: 065
  5. PRILOSEC [Suspect]
     Active Substance: OMEPRAZOLE MAGNESIUM
     Indication: PAIN MANAGEMENT
     Dosage: 20.0MG UNKNOWN
     Route: 048
     Dates: start: 2001
  6. PRILOSEC [Suspect]
     Active Substance: OMEPRAZOLE MAGNESIUM
     Indication: DYSPEPSIA
     Dosage: 200.0MG UNKNOWN
     Route: 048
     Dates: start: 200209
  7. LIPITOR [Concomitant]
     Active Substance: ATORVASTATIN CALCIUM
     Dosage: 10MG/20MG/40MG
     Dates: start: 2001
  8. HEPARIN [Concomitant]
     Active Substance: HEPARIN SODIUM
     Indication: DEEP VEIN THROMBOSIS
  9. NEXIUM [Suspect]
     Active Substance: ESOMEPRAZOLE MAGNESIUM
     Indication: DEPRESSION
     Dosage: GENERIC ESOMEPRAZOLE UNKNOWN
     Route: 065
  10. VIOXX [Concomitant]
     Active Substance: ROFECOXIB
     Dosage: 25.0MG UNKNOWN
     Dates: start: 2002
  11. GLUCOPHAGE [Concomitant]
     Active Substance: METFORMIN HYDROCHLORIDE
     Dosage: 500.0MG UNKNOWN
     Dates: start: 2001
  12. ACTOPLUS MET [Concomitant]
     Active Substance: METFORMIN HYDROCHLORIDE\PIOGLITAZONE HYDROCHLORIDE
     Dosage: 15MG/500MG
     Dates: start: 2001
  13. PALGIC [Concomitant]
     Active Substance: CARBINOXAMINE MALEATE
     Dosage: 4.0MG UNKNOWN
     Dates: start: 2001
  14. NEXIUM [Suspect]
     Active Substance: ESOMEPRAZOLE MAGNESIUM
     Indication: DYSPEPSIA
     Dosage: 40.0MG UNKNOWN
     Route: 065
     Dates: start: 2001
  15. NEXIUM [Suspect]
     Active Substance: ESOMEPRAZOLE MAGNESIUM
     Indication: GASTROOESOPHAGEAL REFLUX DISEASE
     Dosage: 100.0MG UNKNOWN
     Route: 048
     Dates: start: 200209
  16. NEXIUM [Suspect]
     Active Substance: ESOMEPRAZOLE MAGNESIUM
     Indication: ANXIETY
     Dosage: 100.0MG UNKNOWN
     Route: 048
     Dates: start: 200209
  17. NEXIUM [Suspect]
     Active Substance: ESOMEPRAZOLE MAGNESIUM
     Indication: CHEST PAIN
     Dosage: 100.0MG UNKNOWN
     Route: 048
     Dates: start: 200209
  18. PRILOSEC [Suspect]
     Active Substance: OMEPRAZOLE MAGNESIUM
     Indication: GASTROOESOPHAGEAL REFLUX DISEASE
     Dosage: 200.0MG UNKNOWN
     Route: 048
     Dates: start: 200209
  19. PANTOPRAZOLE [Suspect]
     Active Substance: PANTOPRAZOLE
  20. COZOR [Concomitant]
     Dosage: 100.0MG UNKNOWN
     Dates: start: 2001
  21. VIAGRA [Concomitant]
     Active Substance: SILDENAFIL CITRATE
     Dosage: 100.0MG UNKNOWN
     Dates: start: 2001
  22. PRISTIQ EXTENDED-RELEASE [Concomitant]
     Active Substance: DESVENLAFAXINE SUCCINATE
     Dosage: 50.0MG UNKNOWN
     Dates: start: 2001
  23. CLARITIN-D NOS [Concomitant]
     Active Substance: LORATADINE\PSEUDOEPHEDRINE SULFATE
     Dates: start: 2001
  24. CEPHALEXIN. [Concomitant]
     Active Substance: CEPHALEXIN
     Dosage: 500.0MG UNKNOWN
     Dates: start: 2001
  25. HEPARIN [Concomitant]
     Active Substance: HEPARIN SODIUM
     Indication: CHEST PAIN
  26. NEXIUM [Suspect]
     Active Substance: ESOMEPRAZOLE MAGNESIUM
     Indication: HYPERSENSITIVITY
     Dosage: GENERIC ESOMEPRAZOLE UNKNOWN
     Route: 065
  27. NEXIUM [Suspect]
     Active Substance: ESOMEPRAZOLE MAGNESIUM
     Indication: ANXIETY
     Dosage: GENERIC ESOMEPRAZOLE UNKNOWN
     Route: 065
  28. PRILOSEC [Suspect]
     Active Substance: OMEPRAZOLE MAGNESIUM
     Indication: DEPRESSION
     Dosage: 20.0MG UNKNOWN
     Route: 048
     Dates: start: 2001
  29. CELEBREX [Concomitant]
     Active Substance: CELECOXIB
     Dosage: 200/100
     Dates: start: 2002
  30. BEXTRA [Concomitant]
     Active Substance: VALDECOXIB
     Dosage: 10.0MG UNKNOWN
     Dates: start: 2002
  31. NAPROXEN. [Concomitant]
     Active Substance: NAPROXEN
     Dates: start: 2002
  32. MOBIC [Concomitant]
     Active Substance: MELOXICAM
     Dosage: 7.5MG UNKNOWN
     Dates: start: 2001
  33. ZICAM NOS [Concomitant]
     Active Substance: ACETAMINOPHEN\CHLORPHENIRAMINE MALEATE\DEXTROMETHORPHAN HYDROBROMIDE\PHENYLEPHRINE HYDROCHLORIDE OR ACETAMINOPHEN\DEXTROMETHORPHAN HYDROBROMIDE\DOXYLAMINE SUCCINATE\PHENYLEPHRINE HYDROCHLORIDE OR HOMEOPATHICS
     Dates: start: 2001
  34. STATIN [Concomitant]
     Active Substance: UNSPECIFIED INGREDIENT
     Indication: HYPERLIPIDAEMIA
  35. PROTON PUMP INHIBITOR [Concomitant]
     Active Substance: UNSPECIFIED INGREDIENT
  36. NEXIUM [Suspect]
     Active Substance: ESOMEPRAZOLE MAGNESIUM
     Indication: PAIN MANAGEMENT
     Dosage: 40.0MG UNKNOWN
     Route: 065
     Dates: start: 2001
  37. NEXIUM [Suspect]
     Active Substance: ESOMEPRAZOLE MAGNESIUM
     Indication: HYPERSENSITIVITY
     Dosage: 40.0MG UNKNOWN
     Route: 065
     Dates: start: 2001
  38. NEXIUM [Suspect]
     Active Substance: ESOMEPRAZOLE MAGNESIUM
     Indication: CHEST PAIN
     Dosage: 40.0MG UNKNOWN
     Route: 065
     Dates: start: 2001
  39. NEXIUM [Suspect]
     Active Substance: ESOMEPRAZOLE MAGNESIUM
     Indication: GASTROOESOPHAGEAL REFLUX DISEASE
     Dosage: GENERIC ESOMEPRAZOLE UNKNOWN
     Route: 065
  40. NEXIUM [Suspect]
     Active Substance: ESOMEPRAZOLE MAGNESIUM
     Indication: PAIN MANAGEMENT
     Dosage: GENERIC ESOMEPRAZOLE UNKNOWN
     Route: 065
  41. PRILOSEC [Suspect]
     Active Substance: OMEPRAZOLE MAGNESIUM
     Indication: GASTROOESOPHAGEAL REFLUX DISEASE
     Dosage: 20.0MG UNKNOWN
     Route: 048
     Dates: start: 2001
  42. PRILOSEC [Suspect]
     Active Substance: OMEPRAZOLE MAGNESIUM
     Indication: PAIN MANAGEMENT
     Dosage: 200.0MG UNKNOWN
     Route: 048
     Dates: start: 200209
  43. SYMBALTA [Concomitant]
     Dosage: 60.0MG UNKNOWN
     Dates: start: 2001
  44. NITROGLYCERIN. [Concomitant]
     Active Substance: NITROGLYCERIN
  45. NEXIUM [Suspect]
     Active Substance: ESOMEPRAZOLE MAGNESIUM
     Indication: DYSPEPSIA
     Dosage: 100.0MG UNKNOWN
     Route: 048
     Dates: start: 200209
  46. NEXIUM [Suspect]
     Active Substance: ESOMEPRAZOLE MAGNESIUM
     Indication: CHEST PAIN
     Dosage: GENERIC ESOMEPRAZOLE UNKNOWN
     Route: 065
  47. PRILOSEC [Suspect]
     Active Substance: OMEPRAZOLE MAGNESIUM
     Indication: DYSPEPSIA
     Dosage: 20.0MG UNKNOWN
     Route: 048
     Dates: start: 2001
  48. PRILOSEC [Suspect]
     Active Substance: OMEPRAZOLE MAGNESIUM
     Indication: CHEST PAIN
     Dosage: 20.0MG UNKNOWN
     Route: 048
     Dates: start: 2001
  49. PRILOSEC [Suspect]
     Active Substance: OMEPRAZOLE MAGNESIUM
     Indication: CHEST PAIN
     Dosage: 200.0MG UNKNOWN
     Route: 048
     Dates: start: 200209
  50. VYTORIN [Concomitant]
     Active Substance: EZETIMIBE\SIMVASTATIN
     Dosage: 10/20
     Dates: start: 2001
  51. CYCLOBENZAPRINE HYDROCHLORIDE. [Concomitant]
     Active Substance: CYCLOBENZAPRINE HYDROCHLORIDE
     Dosage: 10.0MG UNKNOWN
     Dates: start: 2001
  52. ACIPHEX [Concomitant]
     Active Substance: RABEPRAZOLE SODIUM
     Dosage: 20.0MG UNKNOWN
     Dates: start: 2001
  53. ASPIRIN. [Concomitant]
     Active Substance: ASPIRIN
     Indication: CHEST PAIN
  54. NEXIUM [Suspect]
     Active Substance: ESOMEPRAZOLE MAGNESIUM
     Indication: DEPRESSION
     Dosage: 40.0MG UNKNOWN
     Route: 065
     Dates: start: 2001
  55. PRILOSEC [Suspect]
     Active Substance: OMEPRAZOLE MAGNESIUM
     Indication: DEPRESSION
     Dosage: 200.0MG UNKNOWN
     Route: 048
     Dates: start: 200209
  56. JANUMET [Concomitant]
     Active Substance: METFORMIN HYDROCHLORIDE\SITAGLIPTIN PHOSPHATE
     Dosage: 50/500MG
     Dates: start: 2001
  57. NEXIUM [Suspect]
     Active Substance: ESOMEPRAZOLE MAGNESIUM
     Indication: PAIN MANAGEMENT
     Dosage: 100.0MG UNKNOWN
     Route: 048
     Dates: start: 200209
  58. NEXIUM [Suspect]
     Active Substance: ESOMEPRAZOLE MAGNESIUM
     Indication: HYPERSENSITIVITY
     Dosage: 100.0MG UNKNOWN
     Route: 048
     Dates: start: 200209
  59. PRILOSEC [Suspect]
     Active Substance: OMEPRAZOLE MAGNESIUM
     Indication: ANXIETY
     Dosage: 20.0MG UNKNOWN
     Route: 048
     Dates: start: 2001
  60. PRILOSEC [Suspect]
     Active Substance: OMEPRAZOLE MAGNESIUM
     Indication: ANXIETY
     Dosage: 200.0MG UNKNOWN
     Route: 048
     Dates: start: 200209
  61. GLUCOTROL XL [Concomitant]
     Active Substance: GLIPIZIDE
     Dosage: 5.0MG UNKNOWN
     Dates: start: 2001
  62. CIALIS [Concomitant]
     Active Substance: TADALAFIL
     Dates: start: 2001
  63. PROZAC/FLUOXETINE [Concomitant]
     Dosage: 20.0MG UNKNOWN
     Dates: start: 2001

REACTIONS (28)
  - Thrombosis [Unknown]
  - Bone pain [Unknown]
  - Bone disorder [Unknown]
  - Hypokinesia [Unknown]
  - Memory impairment [Unknown]
  - Cardiac arrest [Unknown]
  - Hypoaesthesia [Unknown]
  - Deformity [Unknown]
  - Paraesthesia [Unknown]
  - Depression [Unknown]
  - Erectile dysfunction [Unknown]
  - Arthralgia [Unknown]
  - Intervertebral disc injury [Unknown]
  - Asthenia [Unknown]
  - Feelings of worthlessness [Unknown]
  - Hemiplegia [Unknown]
  - Ischaemic stroke [Unknown]
  - Arrhythmia [Unknown]
  - Bone density decreased [Unknown]
  - Musculoskeletal disorder [Unknown]
  - Disturbance in attention [Unknown]
  - Gastrointestinal disorder [Unknown]
  - Angina unstable [Unknown]
  - Cerebrovascular accident [Unknown]
  - Myocardial infarction [Unknown]
  - Abdominal discomfort [Unknown]
  - Urinary tract infection [Unknown]
  - Anxiety [Unknown]

NARRATIVE: CASE EVENT DATE: 2004
